FAERS Safety Report 10458543 (Version 1)
Quarter: 2014Q3

REPORT INFORMATION
  Report Type: Spontaneous
  Country: US (occurrence: US)
  Receive Date: 20140917
  Receipt Date: 20140917
  Transmission Date: 20150326
  Serious: No
  Sender: FDA-Public Use
  Company Number: US-BAYER-2014-138478

PATIENT
  Sex: Female

DRUGS (2)
  1. ALKA-SELTZER [ACETYLSALICYLIC ACID] [Concomitant]
     Indication: DYSPEPSIA
  2. ALEVE [Suspect]
     Active Substance: NAPROXEN SODIUM
     Indication: MIGRAINE
     Dosage: UNK

REACTIONS (1)
  - Intentional product misuse [Unknown]
